FAERS Safety Report 7764866-X (Version None)
Quarter: 2011Q3

REPORT INFORMATION
  Report Type: 
  Country: None (occurrence: None)
  Receive Date: 20110921
  Receipt Date: 20110915
  Transmission Date: 20111222
  Serious: Yes (Death)
  Sender: FDA-Public Use
  Company Number: CN-JNJFOC-20110907074

PATIENT
  Age: 80 Year

DRUGS (4)
  1. GALANTAMINE HYDROBROMIDE [Suspect]
     Route: 048
     Dates: start: 20110901, end: 20110915
  2. GALANTAMINE HYDROBROMIDE [Suspect]
     Indication: DEMENTIA ALZHEIMER'S TYPE
     Route: 048
     Dates: start: 20110901, end: 20110915
  3. GALANTAMINE HYDROBROMIDE [Suspect]
     Indication: SENILE DEMENTIA
     Route: 048
  4. GALANTAMINE HYDROBROMIDE [Suspect]
     Route: 048

REACTIONS (1)
  - CHOLELITHIASIS [None]
